FAERS Safety Report 4437077-3 (Version None)
Quarter: 2004Q3

REPORT INFORMATION
  Report Type: 
  Country: None (occurrence: None)
  Receive Date: 20040726
  Receipt Date: 20040415
  Transmission Date: 20050211
  Serious: No
  Sender: FDA-Public Use
  Company Number: USA040363138

PATIENT
  Age: 85 Year
  Sex: Female

DRUGS (1)
  1. FORTEO [Suspect]
     Indication: OSTEOPOROSIS
     Dates: start: 20040311, end: 20040402

REACTIONS (6)
  - ARTHRALGIA [None]
  - BONE PAIN [None]
  - DIFFICULTY IN WALKING [None]
  - FEELING ABNORMAL [None]
  - INJECTION SITE PAIN [None]
  - NECK PAIN [None]
